FAERS Safety Report 4311855-3 (Version None)
Quarter: 2004Q1

REPORT INFORMATION
  Report Type: 
  Country: None (occurrence: None)
  Receive Date: 20040302
  Receipt Date: 20040113
  Transmission Date: 20041129
  Serious: No
  Sender: FDA-Public Use
  Company Number: 200410714BWH

PATIENT
  Sex: Male

DRUGS (4)
  1. LEVITRA [Suspect]
     Dosage: ORAL
     Route: 048
  2. CASODEX [Concomitant]
  3. LUPRON [Concomitant]
  4. ZOCOR [Concomitant]

REACTIONS (1)
  - MUSCLE CRAMP [None]
